FAERS Safety Report 23510847 (Version 1)
Quarter: 2024Q1

REPORT INFORMATION
  Report Type: Spontaneous
  Country: FR (occurrence: FR)
  Receive Date: 20240212
  Receipt Date: 20240212
  Transmission Date: 20240410
  Serious: Yes (Life-Threatening, Other)
  Sender: FDA-Public Use
  Company Number: None

PATIENT
  Age: 73 Year
  Sex: Male
  Weight: 75 kg

DRUGS (3)
  1. BENDAMUSTINE [Suspect]
     Active Substance: BENDAMUSTINE
     Indication: Hodgkin^s disease nodular sclerosis
     Dosage: 200 MG, C1,1, TOTAL
     Route: 042
     Dates: start: 20221206, end: 20221206
  2. DOXORUBICIN [Suspect]
     Active Substance: DOXORUBICIN
     Indication: Hodgkin^s disease nodular sclerosis
     Dosage: 70 MG, C1, 1 TOTAL
     Route: 042
     Dates: start: 20221206, end: 20221206
  3. VINBLASTINE SULFATE [Suspect]
     Active Substance: VINBLASTINE SULFATE
     Indication: Hodgkin^s disease nodular sclerosis
     Dosage: 11 MG, C1, 1 TOTAL
     Route: 042
     Dates: start: 20221206, end: 20221206

REACTIONS (2)
  - Pancytopenia [Recovered/Resolved]
  - Septic shock [Recovered/Resolved]

NARRATIVE: CASE EVENT DATE: 20221213
